FAERS Safety Report 8372382-X (Version None)
Quarter: 2012Q2

REPORT INFORMATION
  Report Type: 
  Country: None (occurrence: None)
  Receive Date: 20120521
  Receipt Date: 20120512
  Transmission Date: 20120825
  Serious: Yes (Other)
  Sender: FDA-Public Use
  Company Number: DE-PAR PHARMACEUTICAL, INC-2012SCPR004380

PATIENT

DRUGS (2)
  1. CABERGOLINE [Suspect]
     Indication: PARKINSON'S DISEASE
     Dosage: 4 MG, / DAY
     Route: 065
  2. CABERGOLINE [Suspect]
     Dosage: 26 MG, / DAY
     Route: 065

REACTIONS (7)
  - TRICUSPID VALVE SCLEROSIS [None]
  - MITRAL VALVE SCLEROSIS [None]
  - MITRAL VALVE PROLAPSE [None]
  - INTENTIONAL DRUG MISUSE [None]
  - MITRAL VALVE INCOMPETENCE [None]
  - AORTIC VALVE SCLEROSIS [None]
  - AORTIC VALVE INCOMPETENCE [None]
